FAERS Safety Report 7814288-8 (Version None)
Quarter: 2011Q4

REPORT INFORMATION
  Report Type: 
  Country: None (occurrence: None)
  Receive Date: 20111014
  Receipt Date: 20110930
  Transmission Date: 20120403
  Serious: Yes (Hospitalization, Other)
  Sender: FDA-Public Use
  Company Number: US-BAYER-2011-082037

PATIENT
  Age: 48 Year
  Sex: Female
  Weight: 62.222 kg

DRUGS (2)
  1. DROSPIRENONE AND ETHINYL ESTRADIOL [Suspect]
     Indication: CONTRACEPTION
     Dosage: UNK
     Dates: start: 20080726, end: 20091012
  2. YASMIN [Suspect]
     Indication: CONTRACEPTION
     Dosage: UNK
     Dates: start: 20080113, end: 20080726

REACTIONS (6)
  - HEPATIC MASS [None]
  - INJURY [None]
  - PAIN [None]
  - HEPATIC STEATOSIS [None]
  - METASTATIC NEOPLASM [None]
  - HEPATIC LESION [None]
